FAERS Safety Report 21694162 (Version 2)
Quarter: 2023Q1

REPORT INFORMATION
  Report Type: Spontaneous
  Country: CN (occurrence: CN)
  Receive Date: 20221207
  Receipt Date: 20230329
  Transmission Date: 20230418
  Serious: Yes (Other)
  Sender: FDA-Public Use
  Company Number: CN-SA-SAC20221206001342

PATIENT
  Age: 63 Year
  Sex: Female

DRUGS (2)
  1. OXALIPLATIN [Suspect]
     Active Substance: OXALIPLATIN
     Indication: Gastric cancer
     Dosage: 150 MG, QD
     Route: 041
     Dates: start: 20221119, end: 20221119
  2. CAPECITABINE [Concomitant]
     Active Substance: CAPECITABINE
     Indication: Gastric cancer
     Dosage: 1 G, BID
     Route: 048
     Dates: start: 20221119

REACTIONS (1)
  - Neurotoxicity [Recovering/Resolving]

NARRATIVE: CASE EVENT DATE: 20221120
